FAERS Safety Report 18345296 (Version 1)
Quarter: 2020Q4

REPORT INFORMATION
  Report Type: Spontaneous
  Country: US (occurrence: US)
  Receive Date: 20201005
  Receipt Date: 20201005
  Transmission Date: 20210114
  Serious: No
  Sender: FDA-Public Use
  Company Number: US-ALLERGAN-2002508US

PATIENT
  Age: 65 Year
  Sex: Female

DRUGS (4)
  1. XANAX [Concomitant]
     Active Substance: ALPRAZOLAM
     Indication: ANXIETY
     Dosage: UNK, QD
     Route: 048
  2. FLEET (GLYCERIN) [Concomitant]
     Active Substance: GLYCERIN
     Indication: BOWEL MOVEMENT IRREGULARITY
     Dosage: UNK, PRN
     Route: 054
  3. STOOL SOFTENER (DOCUSATE) [Concomitant]
     Active Substance: DOCUSATE
     Indication: BOWEL MOVEMENT IRREGULARITY
     Dosage: UNK, TID
     Route: 048
  4. LINZESS [Suspect]
     Active Substance: LINACLOTIDE
     Indication: CONSTIPATION
     Dosage: 290 ?G, QAM
     Route: 048

REACTIONS (3)
  - Diarrhoea [Recovered/Resolved]
  - Product quality issue [Unknown]
  - Therapeutic response decreased [Unknown]
